FAERS Safety Report 4366550-1 (Version None)
Quarter: 2004Q2

REPORT INFORMATION
  Report Type: 
  Country: None (occurrence: None)
  Receive Date: 20040527
  Receipt Date: 20040429
  Transmission Date: 20050107
  Serious: Yes (Life-Threatening, Hospitalization, Disabling, Other)
  Sender: FDA-Public Use
  Company Number: US-MERCK-0404USA02541

PATIENT
  Age: 66 Year
  Sex: Male
  Weight: 91 kg

DRUGS (5)
  1. ALLOPURINOL [Concomitant]
     Route: 065
  2. TENORMIN [Concomitant]
     Route: 065
  3. LOZOL [Concomitant]
     Route: 065
  4. AVAPRO [Concomitant]
     Route: 065
  5. ZOCOR [Suspect]
     Indication: HYPERCHOLESTEROLAEMIA
     Route: 048
     Dates: start: 19970301, end: 20020201

REACTIONS (5)
  - FEELING ABNORMAL [None]
  - MUSCLE CRAMP [None]
  - NAUSEA [None]
  - RENAL FAILURE [None]
  - VOMITING [None]
